FAERS Safety Report 16227856 (Version 1)
Quarter: 2019Q2

REPORT INFORMATION
  Report Type: Spontaneous
  Country: US (occurrence: US)
  Receive Date: 20190422
  Receipt Date: 20190422
  Transmission Date: 20190711
  Serious: Yes (Other)
  Sender: FDA-Public Use
  Company Number: None

PATIENT
  Age: 39 Year
  Sex: Female
  Weight: 60.75 kg

DRUGS (1)
  1. ELLA [Suspect]
     Active Substance: ULIPRISTAL ACETATE
     Indication: CONTRACEPTION
     Route: 048
     Dates: start: 20190401, end: 20190401

REACTIONS (7)
  - Migraine [None]
  - Oedema peripheral [None]
  - Face oedema [None]
  - Weight increased [None]
  - Fluid retention [None]
  - Depression [None]
  - Fatigue [None]

NARRATIVE: CASE EVENT DATE: 20190401
